FAERS Safety Report 17162793 (Version 4)
Quarter: 2021Q2

REPORT INFORMATION
  Report Type: Spontaneous
  Country: US (occurrence: US)
  Receive Date: 20191217
  Receipt Date: 20210616
  Transmission Date: 20210716
  Serious: Yes (Other)
  Sender: FDA-Public Use
  Company Number: US-GILEAD-2019-0442869

PATIENT
  Age: 54 Year
  Sex: Male
  Weight: 92.98 kg

DRUGS (52)
  1. AZITHROMYCIN ANHYDROUS. [Concomitant]
     Active Substance: AZITHROMYCIN ANHYDROUS
  2. FUROSEMIDE. [Concomitant]
     Active Substance: FUROSEMIDE
  3. ROSUVASTATIN. [Concomitant]
     Active Substance: ROSUVASTATIN
  4. FERROUS SULFATE. [Concomitant]
     Active Substance: FERROUS SULFATE
  5. CEFTRIAXONE. [Concomitant]
     Active Substance: CEFTRIAXONE
  6. FLUTICASONE. [Concomitant]
     Active Substance: FLUTICASONE
  7. GLIPIZIDE. [Concomitant]
     Active Substance: GLIPIZIDE
  8. CLINDAMYCIN. [Concomitant]
     Active Substance: CLINDAMYCIN
  9. MONTELUKAST [Concomitant]
     Active Substance: MONTELUKAST SODIUM
  10. SULFAMETH/TRIMETH [Concomitant]
     Active Substance: SULFAMETHOXAZOLE\TRIMETHOPRIM
  11. SEMAGLUTIDE [Concomitant]
     Active Substance: SEMAGLUTIDE
  12. ACETAMINOPHEN. [Concomitant]
     Active Substance: ACETAMINOPHEN
  13. ACYCLOVIR [ACICLOVIR] [Concomitant]
     Active Substance: ACYCLOVIR
  14. REYATAZ [Concomitant]
     Active Substance: ATAZANAVIR SULFATE
  15. VIRAMUNE [Concomitant]
     Active Substance: NEVIRAPINE
  16. BIKTARVY [Concomitant]
     Active Substance: BICTEGRAVIR SODIUM\EMTRICITABINE\TENOFOVIR ALAFENAMIDE FUMARATE
  17. TRESIBA [Concomitant]
     Active Substance: INSULIN DEGLUDEC
  18. CHOLESTYRAMINE. [Concomitant]
     Active Substance: CHOLESTYRAMINE
  19. DIVALPROEX SODIUM. [Concomitant]
     Active Substance: DIVALPROEX SODIUM
  20. CETIRIZINE [Concomitant]
     Active Substance: CETIRIZINE HYDROCHLORIDE
  21. VIAGRA [Concomitant]
     Active Substance: SILDENAFIL CITRATE
  22. VITAMIN D2 [Concomitant]
     Active Substance: ERGOCALCIFEROL
  23. AMPICILLIN [Concomitant]
     Active Substance: AMPICILLIN
  24. DEPAKOTE [Concomitant]
     Active Substance: DIVALPROEX SODIUM
  25. PENICILLIN [PENICILLIN NOS] [Concomitant]
     Active Substance: PENICILLIN
  26. EPIVIR [Concomitant]
     Active Substance: LAMIVUDINE
  27. NORVIR [Concomitant]
     Active Substance: RITONAVIR
  28. ZERIT [Concomitant]
     Active Substance: STAVUDINE
  29. LANTUS [Concomitant]
     Active Substance: INSULIN GLARGINE
  30. SILDENAFIL. [Concomitant]
     Active Substance: SILDENAFIL
  31. TRIUMEQ [Concomitant]
     Active Substance: ABACAVIR SULFATE\DOLUTEGRAVIR SODIUM\LAMIVUDINE
  32. JUBLIA [Concomitant]
     Active Substance: EFINACONAZOLE
  33. LORATADINE. [Concomitant]
     Active Substance: LORATADINE
  34. COMPLERA [Suspect]
     Active Substance: EMTRICITABINE\RILPIVIRINE HYDROCHLORIDE\TENOFOVIR DISOPROXIL FUMARATE
     Indication: HIV INFECTION
     Dosage: 1 DOSAGE FORM, QD
     Route: 048
     Dates: start: 20160318, end: 20161018
  35. VIREAD [Suspect]
     Active Substance: TENOFOVIR DISOPROXIL FUMARATE
     Indication: HIV INFECTION
     Dosage: UNK
     Route: 065
     Dates: start: 2007, end: 2010
  36. VEMLIDY [Concomitant]
     Active Substance: TENOFOVIR ALAFENAMIDE FUMARATE
  37. METFORMIN [Concomitant]
     Active Substance: METFORMIN HYDROCHLORIDE
  38. LISINOPRIL. [Concomitant]
     Active Substance: LISINOPRIL
  39. ATORVASTATIN [Concomitant]
     Active Substance: ATORVASTATIN
  40. LEVEMIR [Concomitant]
     Active Substance: INSULIN DETEMIR
  41. GLIPIZIDE/METFORMIN [Concomitant]
     Active Substance: GLIPIZIDE\METFORMIN HYDROCHLORIDE
  42. AMOXICILLIN. [Concomitant]
     Active Substance: AMOXICILLIN
  43. BACTRIM [Concomitant]
     Active Substance: SULFAMETHOXAZOLE\TRIMETHOPRIM
  44. RETROVIR [Concomitant]
     Active Substance: ZIDOVUDINE
  45. VIDEX [Concomitant]
     Active Substance: DIDANOSINE
  46. CIALIS [Concomitant]
     Active Substance: TADALAFIL
  47. LAMIVUDINE. [Concomitant]
     Active Substance: LAMIVUDINE
  48. LEVOFLOXACIN. [Concomitant]
     Active Substance: LEVOFLOXACIN
  49. EMPAGLIFLOZIN [Concomitant]
     Active Substance: EMPAGLIFLOZIN
  50. TESTOSTERONE. [Concomitant]
     Active Substance: TESTOSTERONE
  51. INTERFERON ALFA NOS [Concomitant]
     Active Substance: INTERFERON ALFA-2A OR INTERFERON ALFA-2B
  52. INVIRASE [Concomitant]
     Active Substance: SAQUINAVIR MESYLATE

REACTIONS (9)
  - Anxiety [Unknown]
  - Glomerulonephritis membranous [Not Recovered/Not Resolved]
  - Emotional distress [Unknown]
  - Pain [Unknown]
  - Nephrotic syndrome [Unknown]
  - Chronic kidney disease [Not Recovered/Not Resolved]
  - Tooth loss [Not Recovered/Not Resolved]
  - Renal failure [Unknown]
  - Anhedonia [Unknown]

NARRATIVE: CASE EVENT DATE: 2016
